FAERS Safety Report 9162193 (Version 2)
Quarter: 2013Q2

REPORT INFORMATION
  Report Type: Spontaneous
  Country: DE (occurrence: DE)
  Receive Date: 20130314
  Receipt Date: 20130429
  Transmission Date: 20140414
  Serious: Yes (Other)
  Sender: FDA-Public Use
  Company Number: PHHY2013DE023197

PATIENT
  Sex: Male

DRUGS (3)
  1. EXFORGE [Suspect]
     Indication: HYPERTENSION
     Dosage: 0.5 DF (160 MG VALS AND 5 MG AMLO), QD
  2. ASPIRIN PROTECT [Concomitant]
     Indication: MYOCARDIAL INFARCTION
     Dosage: UNK UKN, UNK
  3. ASPIRIN PROTECT [Concomitant]
     Indication: STENT PLACEMENT

REACTIONS (5)
  - Skin cancer [Unknown]
  - Blood pressure fluctuation [Unknown]
  - Arrhythmia [Not Recovered/Not Resolved]
  - Performance status decreased [Unknown]
  - Wrong technique in drug usage process [Unknown]
